FAERS Safety Report 5780797-9 (Version None)
Quarter: 2008Q2

REPORT INFORMATION
  Report Type: 
  Country: None (occurrence: None)
  Receive Date: 20080620
  Receipt Date: 20080609
  Transmission Date: 20081010
  Serious: Yes (Other)
  Sender: FDA-Public Use
  Company Number: GB-PFIZER INC-2007065174

PATIENT
  Sex: Male
  Weight: 79.4 kg

DRUGS (1)
  1. CHANTIX [Suspect]
     Route: 048

REACTIONS (4)
  - ACUTE SINUSITIS [None]
  - DRY MOUTH [None]
  - SINUS DISORDER [None]
  - SLEEP DISORDER [None]
